FAERS Safety Report 12764920 (Version 1)
Quarter: 2016Q3

REPORT INFORMATION
  Report Type: Spontaneous
  Country: BR (occurrence: BR)
  Receive Date: 20160921
  Receipt Date: 20160921
  Transmission Date: 20161109
  Serious: Yes (Hospitalization, Other)
  Sender: FDA-Public Use
  Company Number: BR-CONCORDIA PHARMACEUTICALS INC.-GSH201609-004721

PATIENT
  Sex: Female
  Weight: 51 kg

DRUGS (1)
  1. PARNATE [Suspect]
     Active Substance: TRANYLCYPROMINE SULFATE
     Indication: DEPRESSION
     Route: 048

REACTIONS (3)
  - Malaise [Unknown]
  - Neurodegenerative disorder [Unknown]
  - Cerebrovascular accident [Unknown]
